FAERS Safety Report 20506367 (Version 2)
Quarter: 2022Q1

REPORT INFORMATION
  Report Type: Spontaneous
  Country: US (occurrence: US)
  Receive Date: 20220223
  Receipt Date: 20220223
  Transmission Date: 20220423
  Serious: Yes (Hospitalization, Other)
  Sender: FDA-Public Use
  Company Number: US-PFIZER INC-202100930278

PATIENT
  Sex: Female

DRUGS (3)
  1. BOSULIF [Suspect]
     Active Substance: BOSUTINIB MONOHYDRATE
     Dosage: 100 MG, DAILY
     Route: 048
  2. BOSULIF [Suspect]
     Active Substance: BOSUTINIB MONOHYDRATE
     Dosage: 100 MG, 2X/DAY
     Route: 048
     Dates: start: 20210719
  3. BOSULIF [Suspect]
     Active Substance: BOSUTINIB MONOHYDRATE
     Dosage: 100 MG, 2X/DAY(2 TIMES A DAY)

REACTIONS (8)
  - Nausea [Unknown]
  - Gastric ulcer haemorrhage [Unknown]
  - Gastric ulcer [Unknown]
  - Knee arthroplasty [Unknown]
  - Loss of consciousness [Unknown]
  - Presyncope [Unknown]
  - Transfusion [Unknown]
  - Eating disorder [Unknown]
